FAERS Safety Report 20079632 (Version 1)
Quarter: 2021Q4

REPORT INFORMATION
  Report Type: Spontaneous
  Country: US (occurrence: US)
  Receive Date: 20211117
  Receipt Date: 20211117
  Transmission Date: 20220303
  Serious: Yes (Other)
  Sender: FDA-Public Use
  Company Number: US-GLAXOSMITHKLINE-US2021GSK234770

PATIENT
  Sex: Female

DRUGS (2)
  1. ZANTAC [Suspect]
     Active Substance: RANITIDINE HYDROCHLORIDE
     Indication: Oesophageal achalasia
     Dosage: 75 MG, QD
     Route: 065
     Dates: start: 197906, end: 200307
  2. ZANTAC [Suspect]
     Active Substance: RANITIDINE HYDROCHLORIDE
     Indication: Oesophageal achalasia
     Dosage: 75 MG, QD
     Route: 065
     Dates: start: 197906, end: 200307

REACTIONS (1)
  - Breast cancer [Unknown]
